FAERS Safety Report 14938875 (Version 1)
Quarter: 2018Q2

REPORT INFORMATION
  Report Type: Spontaneous
  Country: ZA (occurrence: ZA)
  Receive Date: 20180525
  Receipt Date: 20180525
  Transmission Date: 20180711
  Serious: Yes (Hospitalization)
  Sender: FDA-Public Use
  Company Number: PHHY2018ZA007424

PATIENT
  Age: 78 Year
  Sex: Male

DRUGS (2)
  1. ZOPICLONE SANDOZ [Suspect]
     Active Substance: ZOPICLONE
     Indication: SEDATIVE THERAPY
     Dosage: 7.5 MG, UNK
     Route: 048
     Dates: start: 201712
  2. ISOSORBIDE DINITRATE SANDOZ [Suspect]
     Active Substance: ISOSORBIDE DINITRATE
     Indication: ANGINA PECTORIS
     Dosage: 5 MG, UNK
     Route: 048
     Dates: start: 201801, end: 201803

REACTIONS (1)
  - Prostatic disorder [Unknown]
